FAERS Safety Report 18399283 (Version 1)
Quarter: 2020Q4

REPORT INFORMATION
  Report Type: Spontaneous
  Country: NL (occurrence: NL)
  Receive Date: 20201019
  Receipt Date: 20201019
  Transmission Date: 20210114
  Serious: Yes (Other)
  Sender: FDA-Public Use
  Company Number: NL-SHIRE-NL202033793

PATIENT

DRUGS (4)
  1. INTUNIV [Suspect]
     Active Substance: GUANFACINE HYDROCHLORIDE
     Indication: ATTENTION DEFICIT HYPERACTIVITY DISORDER
     Dosage: 4 MILLIGRAM, 1X/DAY:QD
     Route: 065
  2. MELATONIN [Concomitant]
     Active Substance: MELATONIN
     Indication: PRODUCT USED FOR UNKNOWN INDICATION
  3. INTUNIV [Suspect]
     Active Substance: GUANFACINE HYDROCHLORIDE
     Dosage: 3 MILLIGRAM, 1X/DAY:QD
     Route: 065
  4. INTUNIV [Suspect]
     Active Substance: GUANFACINE HYDROCHLORIDE
     Dosage: 1 MILLIGRAM, 1X/DAY:QD
     Route: 065

REACTIONS (13)
  - Palpitations [Unknown]
  - Dizziness postural [Unknown]
  - Retching [Unknown]
  - Dry mouth [Unknown]
  - Hot flush [Unknown]
  - Feeling cold [Unknown]
  - Nausea [Unknown]
  - Nervousness [Unknown]
  - Hyperhidrosis [Unknown]
  - Tremor [Unknown]
  - Fatigue [Recovering/Resolving]
  - Drug dependence [Unknown]
  - Restlessness [Unknown]
